FAERS Safety Report 13030291 (Version 1)
Quarter: 2016Q4

REPORT INFORMATION
  Report Type: Spontaneous
  Country: US (occurrence: US)
  Receive Date: 20161215
  Receipt Date: 20161215
  Transmission Date: 20170207
  Serious: Yes (Hospitalization)
  Sender: FDA-Public Use
  Company Number: US-BEH-2016075961

PATIENT
  Age: 67 Year
  Sex: Female
  Weight: 78.91 kg

DRUGS (23)
  1. NOVOLOG [Concomitant]
     Active Substance: INSULIN ASPART
  2. ASTELIN                            /00085801/ [Concomitant]
     Active Substance: AZELASTINE HYDROCHLORIDE
  3. CEFTRIAXONE. [Concomitant]
     Active Substance: CEFTRIAXONE
  4. LOVASTATIN. [Concomitant]
     Active Substance: LOVASTATIN
  5. HIZENTRA [Suspect]
     Active Substance: HUMAN IMMUNOGLOBULIN G
     Dosage: UNK
     Route: 058
  6. IMDUR [Concomitant]
     Active Substance: ISOSORBIDE MONONITRATE
  7. TORSEMIDE. [Concomitant]
     Active Substance: TORSEMIDE
  8. MUCO-FEN [Concomitant]
     Active Substance: DEXTROMETHORPHAN HYDROBROMIDE\GUAIFENESIN
  9. HIZENTRA [Suspect]
     Active Substance: HUMAN IMMUNOGLOBULIN G
     Dosage: 3 G, UNK
     Route: 058
     Dates: start: 20101130
  10. RESTORIL [Concomitant]
     Active Substance: TEMAZEPAM
  11. POTASSIUM [Concomitant]
     Active Substance: POTASSIUM
  12. SALINE                             /00075401/ [Concomitant]
     Active Substance: SODIUM CHLORIDE
  13. PEPCID                             /00305201/ [Concomitant]
     Active Substance: ALUMINUM HYDROXIDE\MAGNESIUM CARBONATE
  14. NITROGLYCERIN. [Concomitant]
     Active Substance: NITROGLYCERIN
  15. HIZENTRA [Suspect]
     Active Substance: HUMAN IMMUNOGLOBULIN G
     Indication: IMMUNODEFICIENCY COMMON VARIABLE
     Dosage: UNK
     Route: 058
  16. TOBRAMYCIN. [Concomitant]
     Active Substance: TOBRAMYCIN
  17. FLONASE [Concomitant]
     Active Substance: FLUTICASONE PROPIONATE
  18. LEVAQUIN [Concomitant]
     Active Substance: LEVOFLOXACIN
  19. DILTIAZEM. [Concomitant]
     Active Substance: DILTIAZEM
  20. ATROVENT [Concomitant]
     Active Substance: IPRATROPIUM BROMIDE
  21. ASPIRIN. [Concomitant]
     Active Substance: ASPIRIN
  22. PLAVIX [Concomitant]
     Active Substance: CLOPIDOGREL BISULFATE
  23. DUONEB [Concomitant]
     Active Substance: ALBUTEROL SULFATE\IPRATROPIUM BROMIDE

REACTIONS (3)
  - Dyspnoea [Unknown]
  - Device related infection [Unknown]
  - Infection [Unknown]

NARRATIVE: CASE EVENT DATE: 201610
